FAERS Safety Report 7055282-7 (Version None)
Quarter: 2010Q4

REPORT INFORMATION
  Report Type: 
  Country: None (occurrence: None)
  Receive Date: 20101020
  Receipt Date: 20101020
  Transmission Date: 20110411
  Serious: Yes (Life-Threatening, Hospitalization, Other)
  Sender: FDA-Public Use
  Company Number: None

PATIENT
  Sex: Female
  Weight: 79.3795 kg

DRUGS (1)
  1. ACTOS [Suspect]
     Indication: DIABETES MELLITUS
     Dosage: 1 PER DAY 1 MOUTH
     Route: 048
     Dates: start: 20100504, end: 20100708

REACTIONS (3)
  - DYSPNOEA [None]
  - PALPITATIONS [None]
  - PULMONARY OEDEMA [None]
